FAERS Safety Report 7426420-9 (Version None)
Quarter: 2011Q2

REPORT INFORMATION
  Report Type: 
  Country: None (occurrence: None)
  Receive Date: 20110413
  Receipt Date: 20110405
  Transmission Date: 20111010
  Serious: Yes (Hospitalization, Other)
  Sender: FDA-Public Use
  Company Number: 20119959

PATIENT
  Sex: Female

DRUGS (1)
  1. LIORESAL [Suspect]
     Indication: MUSCLE SPASTICITY
     Dosage: 24.04MCG, DAILY, INTRATHECAL
     Route: 037

REACTIONS (11)
  - MEDICAL DEVICE COMPLICATION [None]
  - FALL [None]
  - MUSCLE SPASTICITY [None]
  - HIP FRACTURE [None]
  - WITHDRAWAL SYNDROME [None]
  - FEMUR FRACTURE [None]
  - PRURITUS [None]
  - MALAISE [None]
  - HYPERTONIA [None]
  - INJURY [None]
  - DEVICE FAILURE [None]
